FAERS Safety Report 25620560 (Version 2)
Quarter: 2025Q3

REPORT INFORMATION
  Report Type: Report from Study
  Country: US (occurrence: US)
  Receive Date: 20250730
  Receipt Date: 20250808
  Transmission Date: 20251021
  Serious: Yes (Hospitalization)
  Sender: ACADIA PHARMACEUTICALS
  Company Number: US-ACADIA PHARMACEUTICALS INC.-ACA-2025-PIM-008624

PATIENT
  Sex: Female

DRUGS (4)
  1. NUPLAZID [Suspect]
     Active Substance: PIMAVANSERIN TARTRATE
     Indication: Hallucination
     Dosage: 34 MILLIGRAM, QD
     Route: 048
     Dates: start: 20220107
  2. APIXABAN [Concomitant]
     Active Substance: APIXABAN
  3. SINEMET [Concomitant]
     Active Substance: CARBIDOPA\LEVODOPA
  4. LISINOPRIL [Concomitant]
     Active Substance: LISINOPRIL

REACTIONS (3)
  - Cardiac pacemaker insertion [Unknown]
  - Product dose omission issue [Unknown]
  - Product use in unapproved indication [Unknown]
